FAERS Safety Report 8395680-2 (Version None)
Quarter: 2012Q2

REPORT INFORMATION
  Report Type: 
  Country: None (occurrence: None)
  Receive Date: 20120530
  Receipt Date: 20120221
  Transmission Date: 20120825
  Serious: No
  Sender: FDA-Public Use
  Company Number: US-GLAXOSMITHKLINE-A0966719A

PATIENT
  Age: 65 Year
  Sex: Female
  Weight: 62.3 kg

DRUGS (7)
  1. MYCELEX [Suspect]
     Indication: PRODUCT USED FOR UNKNOWN INDICATION
     Route: 065
     Dates: start: 20120101
  2. MAGNESIUM [Concomitant]
  3. VENTOLIN [Suspect]
     Indication: ASTHMA
     Dosage: 1PUFF AS REQUIRED
     Route: 055
     Dates: start: 20000101
  4. EYE DROPS [Concomitant]
  5. ATENOLOL [Concomitant]
  6. PLAVIX [Concomitant]
  7. ACCOLATE [Concomitant]

REACTIONS (3)
  - ORAL DISCOMFORT [None]
  - GLOSSODYNIA [None]
  - FEELING COLD [None]
